FAERS Safety Report 12469276 (Version 1)
Quarter: 2016Q2

REPORT INFORMATION
  Report Type: Report from Study
  Country: BR (occurrence: BR)
  Receive Date: 20160615
  Receipt Date: 20160615
  Transmission Date: 20160815
  Serious: Yes (Other)
  Sender: FDA-Public Use
  Company Number: BR-ABBVIE-16P-020-1652781-00

PATIENT
  Age: 50 Year
  Sex: Female
  Weight: 86 kg

DRUGS (10)
  1. ATENOLOL. [Concomitant]
     Active Substance: ATENOLOL
     Indication: HYPERTENSION
     Route: 048
  2. FUROSEMIDE. [Concomitant]
     Active Substance: FUROSEMIDE
     Indication: HYPERTENSION
     Route: 048
  3. TREZOR [Concomitant]
     Active Substance: ROSUVASTATIN CALCIUM
     Indication: BLOOD CHOLESTEROL
     Route: 048
     Dates: start: 201601
  4. OMEPRAZOLE. [Concomitant]
     Active Substance: OMEPRAZOLE
     Indication: GASTRIC DISORDER
     Route: 048
     Dates: start: 2014
  5. LOSARTAN. [Concomitant]
     Active Substance: LOSARTAN
     Indication: HYPERTENSION
     Dosage: DAILY DOSE: 50 MILLIGRAM, IN MORNING
     Route: 048
  6. LIPIDIL [Suspect]
     Active Substance: FENOFIBRATE
     Dosage: DAILY DOSE: 160 MILLIGRAM, AT NIGHT
     Route: 048
     Dates: start: 20160517
  7. METFORMIN HYDROCHLORIDE. [Concomitant]
     Active Substance: METFORMIN HYDROCHLORIDE
     Indication: DIABETES MELLITUS
     Dosage: DAILY DOSE: 2550 MILLIGRAM, AFTER BREAKFAST, LUNCH,DINNER
     Route: 048
     Dates: start: 2014
  8. LIPIDIL [Suspect]
     Active Substance: FENOFIBRATE
     Indication: BLOOD TRIGLYCERIDES
     Dosage: DAILY DOSE; 160 MILLIGRAM, AT NIGHT
     Route: 048
     Dates: start: 201601, end: 201602
  9. SYNTHROID [Concomitant]
     Active Substance: LEVOTHYROXINE SODIUM
     Indication: THYROID DISORDER
     Dosage: DAILY DOSE: 1 TABLET IN FASTING
     Route: 048
     Dates: start: 2008
  10. DAONIL [Concomitant]
     Active Substance: GLYBURIDE
     Indication: DIABETES MELLITUS
     Dosage: DAILY DOSE: 5 MILLIGRAM, BREAKFAST
     Route: 048
     Dates: start: 20160607

REACTIONS (5)
  - Urinary tract infection [Not Recovered/Not Resolved]
  - Lung infection [Not Recovered/Not Resolved]
  - Diabetes mellitus [Not Recovered/Not Resolved]
  - Vision blurred [Unknown]
  - Weight decreased [Unknown]

NARRATIVE: CASE EVENT DATE: 201605
